FAERS Safety Report 19002247 (Version 4)
Quarter: 2021Q4

REPORT INFORMATION
  Report Type: Spontaneous
  Country: FR (occurrence: FR)
  Receive Date: 20210312
  Receipt Date: 20211205
  Transmission Date: 20220303
  Serious: Yes (Hospitalization)
  Sender: FDA-Public Use
  Company Number: FR-CELGENE-FRA-20210300887

PATIENT
  Age: 76 Year
  Sex: Male

DRUGS (43)
  1. VENETOCLAX [Suspect]
     Active Substance: VENETOCLAX
     Indication: Acute myeloid leukaemia
     Route: 048
     Dates: start: 20210126, end: 202101
  2. VENETOCLAX [Suspect]
     Active Substance: VENETOCLAX
     Route: 048
     Dates: start: 20210127, end: 202101
  3. VENETOCLAX [Suspect]
     Active Substance: VENETOCLAX
     Route: 048
     Dates: start: 20210128, end: 20210128
  4. VENETOCLAX [Suspect]
     Active Substance: VENETOCLAX
     Route: 048
     Dates: start: 202101, end: 2021
  5. PEVONEDISTAT [Suspect]
     Active Substance: PEVONEDISTAT
     Indication: Acute myeloid leukaemia
     Route: 065
     Dates: start: 20210126, end: 2021
  6. PEVONEDISTAT [Suspect]
     Active Substance: PEVONEDISTAT
     Route: 065
     Dates: start: 20210128
  7. AZACITIDINE [Suspect]
     Active Substance: AZACITIDINE
     Indication: Acute myeloid leukaemia
     Route: 058
     Dates: start: 20210126, end: 2021
  8. AZACITIDINE [Suspect]
     Active Substance: AZACITIDINE
     Route: 058
     Dates: start: 20210201
  9. SODIUM CHLORIDE [Concomitant]
     Active Substance: SODIUM CHLORIDE
     Indication: Nodule
     Route: 065
     Dates: start: 20210130, end: 20210131
  10. POSACONAZOLE [Concomitant]
     Active Substance: POSACONAZOLE
     Indication: Infection prophylaxis
     Route: 065
     Dates: start: 20210119
  11. ALLOPURINOL [Concomitant]
     Active Substance: ALLOPURINOL
     Indication: Prophylaxis
     Route: 065
     Dates: start: 20210126, end: 20210128
  12. MINERALS NOS [Concomitant]
     Active Substance: MINERALS
     Indication: Decreased appetite
     Route: 065
     Dates: start: 20210121
  13. PIPERACILLIN SODIUM\TAZOBACTAM SODIUM [Concomitant]
     Active Substance: PIPERACILLIN SODIUM\TAZOBACTAM SODIUM
     Indication: Pyrexia
     Route: 065
     Dates: start: 20210118, end: 20210128
  14. CHLORHEXIDINE [Concomitant]
     Active Substance: CHLORHEXIDINE
     Indication: Apical granuloma
     Route: 065
     Dates: start: 20210124, end: 20210131
  15. PHLOROGLUCINOL [Concomitant]
     Active Substance: PHLOROGLUCINOL
     Indication: Diarrhoea
     Route: 065
     Dates: start: 20210202, end: 20210202
  16. WHEY [Concomitant]
     Active Substance: WHEY
     Indication: Decreased appetite
     Route: 065
     Dates: start: 20210121
  17. POTASSIUM CHLORIDE [Concomitant]
     Active Substance: POTASSIUM CHLORIDE
     Indication: Prophylaxis
     Route: 065
     Dates: start: 20210121, end: 20210128
  18. LINEZOLID [Concomitant]
     Active Substance: LINEZOLID
     Indication: Pyrexia
     Route: 065
     Dates: start: 20210120, end: 20210128
  19. SUCROSE [Concomitant]
     Active Substance: SUCROSE
     Indication: Decreased appetite
     Route: 065
     Dates: start: 20210121
  20. ASCORBIC ACID [Concomitant]
     Active Substance: ASCORBIC ACID
     Indication: Decreased appetite
     Route: 065
     Dates: start: 20210121
  21. HERBAL NOS [Concomitant]
     Active Substance: HERBALS
     Indication: Decreased appetite
     Route: 065
     Dates: start: 20210121
  22. LOSARTAN [Concomitant]
     Active Substance: LOSARTAN
     Indication: Hypertension
     Route: 065
  23. DEXTROSE [Concomitant]
     Active Substance: DEXTROSE
     Indication: Decreased appetite
     Route: 065
     Dates: start: 20210121
  24. PARAFFIN [Concomitant]
     Active Substance: PARAFFIN
     Indication: Decreased appetite
     Dates: start: 20210121
  25. CALCIUM GLUCONATE [Concomitant]
     Active Substance: CALCIUM GLUCONATE
     Indication: Decreased appetite
  26. CALCIUM PANTOTHENATE [Concomitant]
     Active Substance: CALCIUM PANTOTHENATE
     Indication: Decreased appetite
     Route: 065
  27. CALCIUM PHOSPHATE [Concomitant]
     Active Substance: CALCIUM PHOSPHATE
     Indication: Decreased appetite
  28. CYANOCOBALAMIN [Concomitant]
     Active Substance: CYANOCOBALAMIN
     Indication: Decreased appetite
  29. MAGNESIUM PHOSPHATE [Concomitant]
     Active Substance: MAGNESIUM PHOSPHATE, TRIBASIC, PENTAHYDRATE
     Indication: Decreased appetite
  30. NICOTINAMIDE [Concomitant]
     Active Substance: NIACINAMIDE
     Indication: Decreased appetite
  31. PYRIDOXINE HYDROCHLORIDE [Concomitant]
     Active Substance: PYRIDOXINE HYDROCHLORIDE
     Indication: Decreased appetite
  32. RIBOFLAVIN [Concomitant]
     Active Substance: RIBOFLAVIN
     Indication: Decreased appetite
  33. RETINOL [Concomitant]
     Active Substance: RETINOL
     Indication: Decreased appetite
  34. THIAMINE HYDROCHLORIDE [Concomitant]
     Active Substance: THIAMINE HYDROCHLORIDE
     Indication: Decreased appetite
  35. TOCOPHEROL [Concomitant]
     Active Substance: TOCOPHEROL
     Indication: Decreased appetite
  36. FOLIC ACID [Concomitant]
     Active Substance: FOLIC ACID
     Indication: Decreased appetite
  37. FERROUS FUMARATE [Concomitant]
     Active Substance: FERROUS FUMARATE
     Indication: Decreased appetite
  38. LIDOCAINE HYDROCHLORIDE [Concomitant]
     Active Substance: LIDOCAINE HYDROCHLORIDE
     Indication: Lymphadenopathy
     Route: 065
     Dates: start: 20210130, end: 20210131
  39. MAGNESIUM SULFATE [Concomitant]
     Active Substance: MAGNESIUM SULFATE
     Indication: Lymphadenopathy
     Route: 065
     Dates: start: 20210130, end: 20210131
  40. VITAMINS NOS [Concomitant]
     Active Substance: VITAMINS
     Indication: Product used for unknown indication
     Route: 065
  41. ERGOCALCIFEROL [Concomitant]
     Active Substance: ERGOCALCIFEROL
     Indication: Decreased appetite
     Route: 062
  42. TAZOBACTAM SODIUM [Concomitant]
     Active Substance: TAZOBACTAM SODIUM
     Indication: Pyrexia
     Route: 065
  43. PIPERACILLIN SODIUM [Concomitant]
     Active Substance: PIPERACILLIN SODIUM
     Indication: Pyrexia
     Route: 065

REACTIONS (1)
  - Leukopenia [Recovered/Resolved]

NARRATIVE: CASE EVENT DATE: 20210222
